FAERS Safety Report 11480411 (Version 1)
Quarter: 2015Q3

REPORT INFORMATION
  Report Type: Report from Study
  Country: US (occurrence: US)
  Receive Date: 20150909
  Receipt Date: 20150909
  Transmission Date: 20151125
  Serious: Yes (Other)
  Sender: FDA-Public Use
  Company Number: US-JNJFOC-20150902321

PATIENT
  Age: 64 Year
  Sex: Female
  Weight: 72.58 kg

DRUGS (5)
  1. REMICADE [Suspect]
     Active Substance: INFLIXIMAB
     Indication: PRODUCT USED FOR UNKNOWN INDICATION
     Route: 042
  2. REMICADE [Suspect]
     Active Substance: INFLIXIMAB
     Indication: PRODUCT USED FOR UNKNOWN INDICATION
     Route: 042
     Dates: start: 2014
  3. PREDNISONE. [Concomitant]
     Active Substance: PREDNISONE
     Route: 048
  4. RESTORIL [Concomitant]
     Active Substance: TEMAZEPAM
     Dosage: AT BED TIME AS NEEDED
     Route: 048
     Dates: start: 20141201, end: 20150527
  5. METHOTREXATE [Concomitant]
     Active Substance: METHOTREXATE
     Route: 048

REACTIONS (8)
  - Chondropathy [Unknown]
  - Essential hypertension [Unknown]
  - Osteomyelitis chronic [Unknown]
  - Breast cancer female [Unknown]
  - Bone disorder [Unknown]
  - Anaemia [Unknown]
  - Arteriosclerosis coronary artery [Unknown]
  - Nicotine dependence [Unknown]

NARRATIVE: CASE EVENT DATE: 20120229
